FAERS Safety Report 18694398 (Version 1)
Quarter: 2020Q4

REPORT INFORMATION
  Report Type: Spontaneous
  Country: US (occurrence: US)
  Receive Date: 20201231
  Receipt Date: 20201231
  Transmission Date: 20210114
  Serious: Yes (Hospitalization)
  Sender: FDA-Public Use
  Company Number: None

PATIENT
  Age: 65 Year
  Sex: Female
  Weight: 85.5 kg

DRUGS (31)
  1. PERIPHERAL NEUROPATHY [Concomitant]
  2. VITAMIN B COMPLEX [Concomitant]
     Active Substance: CYANOCOBALAMIN\DEXPANTHENOL\NIACINAMIDE\PYRIDOXINE HYDROCHLORIDE\RIBOFLAVIN 5^-PHOSPHATE SODIUM\THIAMINE HYDROCHLORIDE\VITAMIN B COMPLEX
  3. KROGER GRAPE FLAVOR MAGNESIUM CITRATE SALINE LAXATIVE [Suspect]
     Active Substance: MAGNESIUM CITRATE
     Indication: COLONOSCOPY
     Dosage: ?          QUANTITY:10 OUNCE(S);?
     Route: 048
     Dates: start: 20200823, end: 20200823
  4. MAG [Concomitant]
  5. FLAXSEED [Concomitant]
     Active Substance: FLAX SEED
  6. DAILY KRILL OIL W/EVENING PRIMROSE [Concomitant]
  7. SUPREP BOWEL PREP [Suspect]
     Active Substance: MAGNESIUM SULFATE\POTASSIUM SULFATE\SODIUM SULFATE
     Indication: COLONOSCOPY
     Dosage: ?          QUANTITY:12 OUNCE(S);?
     Route: 048
     Dates: start: 20200824, end: 20200825
  8. ANTIHISTAMINE [Concomitant]
     Active Substance: ANTIHISTAMINES NOS
  9. HEALTHY BONES [Concomitant]
  10. DAY + NIGHT MILK THISTLE (SILYMARIN) [Concomitant]
  11. FENUGREEK GLYCEMIC CONTROL + BLOOD THINNING [Concomitant]
  12. CYCLOBENZAPRINE. [Concomitant]
     Active Substance: CYCLOBENZAPRINE
  13. PROTON PMP INHIBITOR [Concomitant]
  14. TART CHERRY [Concomitant]
  15. INTEROCULAR LENSES [Concomitant]
  16. ;OSARTAN ARB [Concomitant]
  17. HYDROXYZINE [Concomitant]
     Active Substance: HYDROXYZINE HYDROCHLORIDE
  18. ANALGESIC [Concomitant]
     Active Substance: UNSPECIFIED INGREDIENT
  19. ALPHA LIPOIC ACID [Concomitant]
     Active Substance: .ALPHA.-LIPOIC ACID
  20. DAILY CALCIUM CIRATE + MAGNESIUM +VIT D [Concomitant]
  21. IRON [Concomitant]
     Active Substance: IRON
  22. NIGHTLY FLONASE (GENERIC) [Concomitant]
  23. VIT D [Concomitant]
     Active Substance: VITAMIN D NOS
  24. DAY + NIGHT CELEBREX [Concomitant]
  25. DAY + NIGHT CLARITIN (GENERIC) [Concomitant]
  26. VICODIN [Concomitant]
     Active Substance: ACETAMINOPHEN\HYDROCODONE BITARTRATE
  27. VITAMIN D3 [Concomitant]
     Active Substance: CHOLECALCIFEROL
  28. LUTEIN + ZEAXANTHIN [Concomitant]
  29. TENORMIN [Concomitant]
     Active Substance: ATENOLOL
  30. BETA BLOCKER [Concomitant]
     Active Substance: UNSPECIFIED INGREDIENT
  31. PRILOSEC [Concomitant]
     Active Substance: OMEPRAZOLE MAGNESIUM

REACTIONS (4)
  - Small intestinal obstruction [None]
  - Inflammation [None]
  - Product formulation issue [None]
  - Burning mouth syndrome [None]

NARRATIVE: CASE EVENT DATE: 20200823
